FAERS Safety Report 21401217 (Version 1)
Quarter: 2022Q4

REPORT INFORMATION
  Report Type: Report from Study
  Country: US (occurrence: US)
  Receive Date: 20221003
  Receipt Date: 20221003
  Transmission Date: 20230113
  Serious: Yes (Other)
  Sender: FDA-Public Use
  Company Number: US-BRISTOL-MYERS SQUIBB COMPANY-2022-113249

PATIENT
  Age: 60 Year
  Sex: Female
  Weight: 81.65 kg

DRUGS (5)
  1. OPDIVO [Suspect]
     Active Substance: NIVOLUMAB
     Indication: Renal cancer metastatic
     Dosage: DOSE : UNAVAILABLE;     FREQ : EVERY 28 DAYS
     Route: 042
     Dates: start: 202001
  2. YERVOY [Suspect]
     Active Substance: IPILIMUMAB
     Indication: Renal cancer metastatic
     Route: 042
     Dates: start: 202001
  3. LEVOTHYROXINE SODIUM [Concomitant]
     Active Substance: LEVOTHYROXINE SODIUM
     Indication: Product used for unknown indication
     Route: 065
  4. DIPHENHYDRAMINE HYDROCHLORIDE\GUAIFENESIN [Concomitant]
     Active Substance: DIPHENHYDRAMINE HYDROCHLORIDE\GUAIFENESIN
     Indication: Product used for unknown indication
     Route: 042
  5. FAMOTIDINE [Concomitant]
     Active Substance: FAMOTIDINE
     Indication: Product used for unknown indication
     Route: 065

REACTIONS (4)
  - Pancreatic failure [Unknown]
  - Type 1 diabetes mellitus [Unknown]
  - Splenomegaly [Unknown]
  - Hepatomegaly [Unknown]

NARRATIVE: CASE EVENT DATE: 20211001
